FAERS Safety Report 4525004-X (Version None)
Quarter: 2004Q4

REPORT INFORMATION
  Report Type: 
  Country: None (occurrence: None)
  Receive Date: 20041117
  Receipt Date: 20030722
  Transmission Date: 20050328
  Serious: Yes (Other)
  Sender: FDA-Public Use
  Company Number: C2003-1892.01

PATIENT
  Age: 41 Year
  Sex: Female

DRUGS (3)
  1. CLOZAPINE [Suspect]
     Indication: SCHIZOPHRENIA, PARANOID TYPE
     Dosage: 200MG Q AM AND 400MG HS, ORAL
     Route: 048
     Dates: start: 20030326
  2. ARIPIPRAZOLE [Concomitant]
  3. VALPROIC ACID [Concomitant]

REACTIONS (1)
  - NEUTROPENIA [None]
